FAERS Safety Report 7870111 (Version 15)
Quarter: 2014Q4

REPORT INFORMATION
  Report Type: Report from Study
  Country: FR (occurrence: FR)
  Receive Date: 20110324
  Receipt Date: 20141230
  Transmission Date: 20150529
  Serious: Yes (Hospitalization, Other)
  Sender: FDA-Public Use
  Company Number: FR-ROCHE-765966

PATIENT
  Age: 14 Year
  Sex: Female
  Weight: 38 kg

DRUGS (27)
  1. VINCRISTINE [Suspect]
     Active Substance: VINCRISTINE
     Indication: SARCOMA METASTATIC
     Dosage: C1, C2, C3. FORM: 1.5 MG/M2.LAST DOSE PRIOR TO SAE: 11 JULY 2011
     Route: 042
  2. ZOVIRAX [Concomitant]
     Active Substance: ACYCLOVIR
     Route: 065
  3. DOXORUBICIN [Suspect]
     Active Substance: DOXORUBICIN
     Indication: SARCOMA METASTATIC
     Dosage: FREQUENCY: DAY 1 AND DAY 2. DOSAGE FORM: 30 MG/M2.
     Route: 042
  4. MINIDRIL [Concomitant]
     Active Substance: ETHINYL ESTRADIOL\LEVONORGESTREL
     Dosage: DOSE: 1CP DAILY
     Route: 065
  5. PHOSPHONEUROS [Concomitant]
     Active Substance: CALCIUM PHOSPHATE, DIBASIC, ANHYDROUS\MAGNESIUM GLYCEROPHOSPHATE\PHOSPHORIC ACID\SODIUM PHOSPHATE, DIBASIC
     Route: 065
  6. ZOPHREN [Concomitant]
     Active Substance: ONDANSETRON
     Route: 065
  7. ACTINOMYCIN D [Suspect]
     Active Substance: DACTINOMYCIN
     Indication: SARCOMA METASTATIC
     Dosage: DOSAGE FORM: 1.5MG/M2. LAST DOSE PRIOR TO SAE: 11 JULY 2011
     Route: 042
  8. ORANOR [Concomitant]
     Dosage: TDD: 4 DROPSX 6/ DAY
     Route: 065
     Dates: start: 20110312, end: 20110402
  9. NEURONTIN [Concomitant]
     Active Substance: GABAPENTIN
     Route: 065
  10. OGASTORO [Concomitant]
     Active Substance: LANSOPRAZOLE
     Route: 065
  11. FORLAX [Concomitant]
     Active Substance: POLYETHYLENE GLYCOL 4000
     Route: 065
     Dates: start: 20110305
  12. EMEND [Concomitant]
     Active Substance: APREPITANT
     Route: 065
     Dates: start: 20140504, end: 20140505
  13. MACROGOL [Concomitant]
     Active Substance: POLYETHYLENE GLYCOLS
     Route: 065
  14. ZOLOFT [Concomitant]
     Active Substance: SERTRALINE HYDROCHLORIDE
     Route: 065
  15. LARGACTIL [Concomitant]
     Active Substance: CHLORPROMAZINE
     Route: 065
     Dates: start: 20140504, end: 20140505
  16. DOLIPRANE [Concomitant]
     Active Substance: ACETAMINOPHEN
     Dosage: TDD: UK
     Route: 065
  17. RIVOTRIL [Concomitant]
     Active Substance: CLONAZEPAM
     Dosage: TDD: 12 DROPS
     Route: 065
  18. TRANXENE T-TAB [Concomitant]
     Active Substance: CLORAZEPATE DIPOTASSIUM
     Route: 065
     Dates: start: 20110312, end: 20110312
  19. LOVENOX [Concomitant]
     Active Substance: ENOXAPARIN SODIUM
     Route: 065
  20. CONTRAMAL [Concomitant]
     Active Substance: TRAMADOL HYDROCHLORIDE
     Route: 065
     Dates: start: 20110309, end: 20110313
  21. BEVACIZUMAB [Suspect]
     Active Substance: BEVACIZUMAB
     Indication: SARCOMA METASTATIC
     Dosage: FREQUENCY: DAY 1. DOSAGE FORM: 7.5 MG/KG.LAST DOSE PRIOR TO SAE: 11 JULY 2011
     Route: 042
  22. IFOSFAMIDE. [Suspect]
     Active Substance: IFOSFAMIDE
     Indication: SARCOMA METASTATIC
     Dosage: 3.85  GR, FREQUENCY: DAY 1- DAY 2. DOSAGE FORM: 3 GR/M2.LAST DOSE PRIOR TO SAE: 12 JULY 2011
     Route: 042
  23. PREDNISOLONE SODIUM METASULFOBENZOATE [Concomitant]
     Active Substance: PREDNISOLONE SODIUM METAZOATE
     Route: 065
     Dates: start: 20110309, end: 20110315
  24. METHOTREXATE SODIUM. [Concomitant]
     Active Substance: METHOTREXATE SODIUM
     Dosage: TOTAL DAILY DOSE: 4 SACHETS
     Route: 065
  25. MACROGOL [Concomitant]
     Active Substance: POLYETHYLENE GLYCOLS
     Route: 065
  26. ANDROCUR [Concomitant]
     Active Substance: CYPROTERONE ACETATE
     Dosage: TOTAL DAILY DOSE: 1/2CP
     Route: 065
  27. ANDROCUR [Concomitant]
     Active Substance: CYPROTERONE ACETATE
     Route: 065
     Dates: start: 20110517, end: 20110607

REACTIONS (6)
  - Metrorrhagia [Recovered/Resolved]
  - Mucosal inflammation [Recovered/Resolved]
  - Febrile bone marrow aplasia [Recovered/Resolved]
  - Febrile neutropenia [Recovered/Resolved]
  - Vomiting [Recovered/Resolved]
  - Weight decreased [Not Recovered/Not Resolved]

NARRATIVE: CASE EVENT DATE: 20110312
